FAERS Safety Report 9262787 (Version 2)
Quarter: 2013Q2

REPORT INFORMATION
  Report Type: Report from Study
  Country: US (occurrence: US)
  Receive Date: 20130430
  Receipt Date: 20130528
  Transmission Date: 20140414
  Serious: Yes (Other)
  Sender: FDA-Public Use
  Company Number: PHEH2013US009307

PATIENT
  Age: 58 Year
  Sex: Female

DRUGS (1)
  1. TASIGNA [Suspect]
     Indication: LYMPHOCYTIC LEUKAEMIA
     Dosage: 400 MG, QID
     Route: 048
     Dates: start: 20121128

REACTIONS (3)
  - Lymphocytic leukaemia [Unknown]
  - Leukaemia recurrent [Unknown]
  - Labelled drug-food interaction medication error [Unknown]
